FAERS Safety Report 4770954-2 (Version None)
Quarter: 2005Q3

REPORT INFORMATION
  Report Type: 
  Country: None (occurrence: None)
  Receive Date: 20050915
  Receipt Date: 20050908
  Transmission Date: 20060218
  Serious: Yes (Other)
  Sender: FDA-Public Use
  Company Number: 200517928GDDC

PATIENT
  Sex: Female

DRUGS (1)
  1. RIFADIN [Suspect]
     Indication: STAPHYLOCOCCAL INFECTION
     Dates: start: 20050907

REACTIONS (1)
  - VITREOUS HAEMORRHAGE [None]
